FAERS Safety Report 6923719-7 (Version None)
Quarter: 2010Q3

REPORT INFORMATION
  Report Type: 
  Country: None (occurrence: None)
  Receive Date: 20100813
  Receipt Date: 20100803
  Transmission Date: 20110219
  Serious: No
  Sender: FDA-Public Use
  Company Number: IL-ELI_LILLY_AND_COMPANY-IL201008000714

PATIENT
  Age: 65 Year
  Sex: Female

DRUGS (5)
  1. CYMBALTA [Suspect]
     Indication: DIABETIC NEUROPATHY
     Dosage: 30 MG, UNKNOWN
     Route: 065
  2. CIPRALEX [Concomitant]
     Indication: DIABETIC NEUROPATHY
  3. LYRICA [Concomitant]
     Indication: DIABETIC NEUROPATHY
  4. ALGOLYSIN [Concomitant]
     Indication: DIABETIC NEUROPATHY
  5. TRAMADEX [Concomitant]
     Indication: DIABETIC NEUROPATHY

REACTIONS (4)
  - DYSGEUSIA [None]
  - HEPATIC PAIN [None]
  - SLEEP DISORDER [None]
  - TREMOR [None]
